FAERS Safety Report 19368988 (Version 1)
Quarter: 2021Q2

REPORT INFORMATION
  Report Type: Spontaneous
  Country: US (occurrence: US)
  Receive Date: 20210602
  Receipt Date: 20210602
  Transmission Date: 20210717
  Serious: No
  Sender: FDA-Public Use
  Company Number: US-GLAXOSMITHKLINE-USCH2021032871

PATIENT
  Age: 67 Year
  Sex: Female

DRUGS (1)
  1. ADVIL [Suspect]
     Active Substance: IBUPROFEN
     Indication: INFLAMMATION
     Dosage: 1800 MG, QD
     Dates: start: 20210401

REACTIONS (5)
  - Muscle tightness [Unknown]
  - Incorrect dose administered [Unknown]
  - Discomfort [Unknown]
  - Peripheral swelling [Unknown]
  - Product use issue [Unknown]
